FAERS Safety Report 4376865-9 (Version None)
Quarter: 2004Q2

REPORT INFORMATION
  Report Type: 
  Country: None (occurrence: None)
  Receive Date: 20040609
  Receipt Date: 20040324
  Transmission Date: 20050107
  Serious: Yes (Hospitalization)
  Sender: FDA-Public Use
  Company Number: US-SHR-03-011428

PATIENT
  Age: 40 Year
  Sex: Female
  Weight: 110.7 kg

DRUGS (9)
  1. YASMIN [Suspect]
     Indication: ENDOMETRIOSIS
     Dosage: 1 TAB, 1X/DAY, ORAL
     Route: 048
     Dates: start: 20020718, end: 20030613
  2. UNIPHYL [Concomitant]
  3. PAXIL [Concomitant]
  4. FLONASE [Concomitant]
  5. ZANTAC [Concomitant]
  6. ADVAIR DISKUS (FLUTICASONE PROPIONATE, SALMETEROL XINAFOATE) [Concomitant]
  7. ALBUTEROL [Concomitant]
  8. FLEXERIL [Concomitant]
  9. IBUPROFEN [Concomitant]

REACTIONS (5)
  - BLOOD PRESSURE FLUCTUATION [None]
  - CEREBROVASCULAR ACCIDENT [None]
  - HEADACHE [None]
  - TUNNEL VISION [None]
  - WEIGHT DECREASED [None]
